FAERS Safety Report 9131018 (Version 2)
Quarter: 2013Q1

REPORT INFORMATION
  Report Type: Spontaneous
  Country: US (occurrence: US)
  Receive Date: 20130301
  Receipt Date: 20130307
  Transmission Date: 20140127
  Serious: No
  Sender: FDA-Public Use
  Company Number: US-BAYER-2013-024927

PATIENT
  Sex: Female

DRUGS (1)
  1. MIRENA [Suspect]
     Dosage: 20 MCG/24HR, CONT
     Route: 015
     Dates: start: 20130220

REACTIONS (11)
  - Procedural pain [None]
  - Medical device discomfort [None]
  - Swelling [None]
  - Abnormal weight gain [None]
  - Breast tenderness [None]
  - Abdominal pain lower [None]
  - Activities of daily living impaired [None]
  - Vulvovaginal pain [None]
  - Premenstrual syndrome [None]
  - Mobility decreased [None]
  - Discomfort [None]
